FAERS Safety Report 8523946-1 (Version None)
Quarter: 2012Q3

REPORT INFORMATION
  Report Type: 
  Country: None (occurrence: None)
  Receive Date: 20120720
  Receipt Date: 20120712
  Transmission Date: 20120928
  Serious: Yes (Hospitalization)
  Sender: FDA-Public Use
  Company Number: US-BAYER-2012-070970

PATIENT
  Age: 42 Year
  Sex: Female
  Weight: 89.342 kg

DRUGS (4)
  1. KEFLEX [Concomitant]
     Indication: RESPIRATORY TRACT INFECTION
  2. YAZ [Suspect]
     Indication: ACNE
  3. CEPHALEXIN [Concomitant]
     Indication: EAR INFECTION
  4. CEPHALEXIN [Concomitant]
     Indication: SINUSITIS
     Dosage: 500 MG, UNK

REACTIONS (2)
  - PULMONARY EMBOLISM [None]
  - DEEP VEIN THROMBOSIS [None]
